FAERS Safety Report 8979438 (Version 2)
Quarter: 2013Q1

REPORT INFORMATION
  Report Type: Spontaneous
  Country: DE (occurrence: DE)
  Receive Date: 20121221
  Receipt Date: 20130109
  Transmission Date: 20140127
  Serious: Yes (Hospitalization)
  Sender: FDA-Public Use
  Company Number: DE-TEVA-375654GER

PATIENT
  Age: 42 Year
  Sex: Male

DRUGS (6)
  1. PREDNISOLONE [Suspect]
     Indication: SARCOIDOSIS
     Dosage: 8 MILLIGRAM DAILY;
     Route: 065
  2. FLUCYTOSINE [Concomitant]
     Indication: CRYPTOCOCCOSIS
     Dosage: 100 MG/KG DAILY;
     Route: 065
  3. AMPHOTERICIN B [Concomitant]
     Indication: CRYPTOCOCCOSIS
     Route: 065
  4. SALBUTAMOL [Concomitant]
     Indication: SARCOIDOSIS
     Route: 055
  5. FLUCONAZOLE [Concomitant]
     Indication: CRYPTOCOCCOSIS
     Dosage: 800 MILLIGRAM DAILY;
     Route: 065
  6. DARAPRIM [Concomitant]
     Indication: CRYPTOCOCCOSIS
     Dosage: 50 MILLIGRAM DAILY;
     Route: 065

REACTIONS (2)
  - Cryptococcosis [Not Recovered/Not Resolved]
  - Granuloma [Unknown]
